FAERS Safety Report 7056261-6 (Version None)
Quarter: 2010Q4

REPORT INFORMATION
  Report Type: 
  Country: None (occurrence: None)
  Receive Date: 20101021
  Receipt Date: 20101008
  Transmission Date: 20110411
  Serious: Yes (Congenital Anomaly)
  Sender: FDA-Public Use
  Company Number: NL-ELI_LILLY_AND_COMPANY-NL201008008440

PATIENT

DRUGS (8)
  1. PROZAC [Suspect]
     Dosage: 20 MG, DAILY (1/D)
     Route: 064
  2. FOLIC ACID [Concomitant]
     Route: 064
  3. OXAZEPAM [Concomitant]
     Route: 064
  4. PROMETHAZINE [Concomitant]
     Route: 064
  5. TRUXAL [Concomitant]
     Route: 064
  6. FERRO                              /00023503/ [Concomitant]
     Route: 064
  7. AMOXICILLIN [Concomitant]
     Route: 064
  8. MARIJUANA [Concomitant]
     Dosage: UNK, DAILY (1/D)

REACTIONS (2)
  - DRUG EXPOSURE DURING PREGNANCY [None]
  - GASTROSCHISIS [None]
